FAERS Safety Report 7098677-8 (Version None)
Quarter: 2010Q4

REPORT INFORMATION
  Report Type: 
  Country: None (occurrence: None)
  Receive Date: 20101112
  Receipt Date: 20101105
  Transmission Date: 20110411
  Serious: Yes (Hospitalization)
  Sender: FDA-Public Use
  Company Number: JP-ROCHE-718723

PATIENT
  Sex: Female

DRUGS (45)
  1. TOCILIZUMAB [Suspect]
     Indication: RHEUMATOID ARTHRITIS
     Route: 041
     Dates: start: 20090612, end: 20090612
  2. TOCILIZUMAB [Suspect]
     Route: 041
     Dates: start: 20090714, end: 20090714
  3. TOCILIZUMAB [Suspect]
     Route: 041
     Dates: start: 20090831, end: 20090831
  4. TOCILIZUMAB [Suspect]
     Route: 041
     Dates: start: 20090929, end: 20090929
  5. TOCILIZUMAB [Suspect]
     Route: 041
     Dates: start: 20091027, end: 20091027
  6. PREDNISOLONE [Suspect]
     Indication: RHEUMATOID ARTHRITIS
     Dosage: DOSE DECREASED
     Route: 048
     Dates: end: 20090617
  7. PREDNISOLONE [Suspect]
     Dosage: DOSE DECREASED.
     Route: 048
     Dates: start: 20090618, end: 20090622
  8. PREDNISOLONE [Suspect]
     Route: 048
     Dates: start: 20090623, end: 20090713
  9. PREDNISOLONE [Suspect]
     Route: 048
     Dates: start: 20090714, end: 20090722
  10. PREDNISOLONE [Suspect]
     Route: 048
     Dates: start: 20090723, end: 20090729
  11. PREDNISOLONE [Suspect]
     Route: 048
     Dates: start: 20090730, end: 20090805
  12. PREDNISOLONE [Suspect]
     Route: 048
     Dates: start: 20090806, end: 20090812
  13. PREDNISOLONE [Suspect]
     Route: 048
     Dates: start: 20090413, end: 20090826
  14. PREDNISOLONE [Suspect]
     Route: 048
     Dates: start: 20090827, end: 20090902
  15. PREDNISOLONE [Suspect]
     Route: 048
     Dates: start: 20090903, end: 20091026
  16. PREDNISOLONE [Suspect]
     Route: 048
     Dates: start: 20091027
  17. PREDONINE [Suspect]
     Indication: PLATELET COUNT DECREASED
     Dosage: INTRAVENOUS (NOT OTHERWISE SPECIFIED), DOSE INCRESED.
     Route: 042
     Dates: start: 20090619, end: 20090620
  18. PREDONINE [Suspect]
     Dosage: INTRAVENOUS (NOT OTHERWISE SPECIFIED)
     Route: 042
     Dates: start: 20090621, end: 20090623
  19. GLYCYRRHIZA GLABRA [Suspect]
     Dosage: FORM:INTRAVENOUS (NOT OTHERWISE SPECIFIED),
     Route: 042
     Dates: end: 20090616
  20. GLYCYRRHIZA GLABRA [Suspect]
     Dosage: INTRAVENOUS (NOT OTHERWISE SPECIFIED)
     Route: 042
     Dates: start: 20090617, end: 20090622
  21. GLYCYRRHIZA GLABRA [Suspect]
     Route: 042
     Dates: start: 20090623, end: 20090629
  22. FUROSEMIDE [Suspect]
     Indication: OEDEMA
     Route: 042
     Dates: start: 20090613, end: 20090623
  23. FUROSEMIDE [Suspect]
     Route: 048
     Dates: start: 20090616, end: 20090722
  24. FUROSEMIDE [Suspect]
     Route: 048
     Dates: start: 20090723, end: 20090928
  25. FUROSEMIDE [Suspect]
     Route: 048
     Dates: start: 20090929
  26. BUCILLAMINE [Concomitant]
     Route: 048
     Dates: start: 20081024, end: 20090624
  27. AZULFIDINE [Concomitant]
     Route: 048
     Dates: start: 20081114, end: 20090526
  28. AZULFIDINE [Concomitant]
     Route: 048
     Dates: start: 20090427, end: 20090624
  29. AMOBAN [Concomitant]
     Route: 048
     Dates: end: 20090617
  30. PARIET [Concomitant]
     Route: 048
     Dates: end: 20090618
  31. PARIET [Concomitant]
     Route: 048
  32. 8-HOUR BAYER [Concomitant]
     Route: 048
     Dates: start: 20090622
  33. PROGRAF [Concomitant]
     Route: 048
     Dates: start: 20090929
  34. CALFINA [Concomitant]
     Route: 048
  35. SENNOSIDE [Concomitant]
     Route: 048
     Dates: end: 20090819
  36. VANCOMYCIN HYDROCHLORIDE [Concomitant]
     Route: 042
     Dates: end: 20090615
  37. IMIPENEM AND CILASTATIN [Concomitant]
     Route: 042
     Dates: start: 20090622, end: 20090629
  38. IMIPENEM AND CILASTATIN [Concomitant]
     Route: 042
     Dates: start: 20090818, end: 20090822
  39. MEROPEN [Concomitant]
     Route: 042
     Dates: start: 20090806, end: 20090817
  40. DALACIN [Concomitant]
     Route: 042
     Dates: start: 20090806, end: 20090817
  41. ACTONEL [Concomitant]
     Route: 048
  42. BAKTAR [Concomitant]
     Route: 048
     Dates: end: 20090615
  43. MUCOSTA [Concomitant]
     Route: 048
     Dates: start: 20090623
  44. GLAKAY [Concomitant]
     Route: 048
     Dates: start: 20090623
  45. FAMOTIDINE [Concomitant]
     Route: 048
     Dates: start: 20090623

REACTIONS (7)
  - HISTIOCYTOSIS HAEMATOPHAGIC [None]
  - HYPERGLYCAEMIA [None]
  - HYPERLIPIDAEMIA [None]
  - HYPERTENSION [None]
  - HYPOALBUMINAEMIA [None]
  - HYPOKALAEMIA [None]
  - OEDEMA [None]
